FAERS Safety Report 4673791-2 (Version None)
Quarter: 2005Q2

REPORT INFORMATION
  Report Type: 
  Country: None (occurrence: None)
  Receive Date: 20050524
  Receipt Date: 20050518
  Transmission Date: 20051028
  Serious: Yes (Other)
  Sender: FDA-Public Use
  Company Number: GBWYE677319MAY05

PATIENT
  Sex: Female

DRUGS (1)
  1. EFFEXOR [Suspect]
     Dates: end: 20050501

REACTIONS (2)
  - DRUG WITHDRAWAL SYNDROME [None]
  - JOINT STIFFNESS [None]
